FAERS Safety Report 8130014-X (Version None)
Quarter: 2012Q1

REPORT INFORMATION
  Report Type: 
  Country: None (occurrence: None)
  Receive Date: 20120210
  Receipt Date: 20120203
  Transmission Date: 20120608
  Serious: Yes (Death, Life-Threatening, Hospitalization, Disabling, Other)
  Sender: FDA-Public Use
  Company Number: RU-ABBOTT-12P-251-0891253-00

PATIENT
  Age: 3 Year
  Sex: Female

DRUGS (3)
  1. SEVOFLURANE [Suspect]
     Indication: ANAESTHESIA
     Dosage: 2-2.5 VOL%
     Route: 055
     Dates: start: 20120109, end: 20120109
  2. AIR/OXYGEN [Concomitant]
     Indication: PRODUCT USED FOR UNKNOWN INDICATION
     Dosage: 0.7:0.7
  3. SEVOFLURANE [Suspect]
     Indication: INDUCTION AND MAINTENANCE OF ANAESTHESIA

REACTIONS (8)
  - HYPERTHERMIA MALIGNANT [None]
  - COMA [None]
  - BRAIN OEDEMA [None]
  - ANURIA [None]
  - PULMONARY OEDEMA [None]
  - ANAPHYLACTIC SHOCK [None]
  - RHABDOMYOLYSIS [None]
  - MULTI-ORGAN FAILURE [None]
